FAERS Safety Report 9705560 (Version 1)
Quarter: 2013Q4

REPORT INFORMATION
  Report Type: Spontaneous
  Country: US (occurrence: US)
  Receive Date: 20131122
  Receipt Date: 20131122
  Transmission Date: 20140711
  Serious: No
  Sender: FDA-Public Use
  Company Number: US-GILEAD-2008-0016934

PATIENT
  Sex: Female

DRUGS (13)
  1. LETAIRIS [Suspect]
     Indication: PULMONARY ARTERIAL HYPERTENSION
     Route: 048
     Dates: start: 20080616
  2. BUMETANIDE [Concomitant]
  3. SPIRONOLACTONE [Concomitant]
  4. NADOLOL [Concomitant]
  5. LEVEMIR [Concomitant]
  6. LEVOXYL [Concomitant]
  7. POTASSIUM ACETATE [Concomitant]
  8. PREDNISOLONE [Concomitant]
  9. CITALOPRAM [Concomitant]
  10. AMITRIPTYLINE [Concomitant]
  11. ALPRAZOLAM [Concomitant]
  12. XIFAXAN [Concomitant]
  13. MORPHINE SULFATE [Concomitant]

REACTIONS (1)
  - Oedema peripheral [Unknown]
